FAERS Safety Report 6667058-0 (Version None)
Quarter: 2010Q2

REPORT INFORMATION
  Report Type: 
  Country: None (occurrence: None)
  Receive Date: 20100401
  Receipt Date: 20100322
  Transmission Date: 20101027
  Serious: No
  Sender: FDA-Public Use
  Company Number: CERZ-1001138

PATIENT
  Age: 73 Year
  Sex: Female
  Weight: 42.6 kg

DRUGS (2)
  1. CEREZYME [Suspect]
     Indication: GAUCHER'S DISEASE
     Dosage: 500 U, INTERVENOUS
     Route: 042
     Dates: start: 19990101
  2. BETA BLOCKING AGENTS [Concomitant]

REACTIONS (4)
  - BLINDNESS UNILATERAL [None]
  - ECONOMIC PROBLEM [None]
  - EYE INJURY [None]
  - ROAD TRAFFIC ACCIDENT [None]
